FAERS Safety Report 4962325-0 (Version None)
Quarter: 2006Q2

REPORT INFORMATION
  Report Type: 
  Country: None (occurrence: None)
  Receive Date: 20060404
  Receipt Date: 20060324
  Transmission Date: 20061013
  Serious: Yes (Other)
  Sender: FDA-Public Use
  Company Number: 2006AP01430

PATIENT
  Age: 43 Year
  Sex: Female

DRUGS (7)
  1. SEROQUEL [Suspect]
     Dosage: 400MG TO 600MG DAILY
     Route: 048
  2. SEROQUEL [Interacting]
     Route: 048
  3. KETOCONAZOLE [Interacting]
     Route: 065
  4. MOCLOBEMIDE [Concomitant]
     Route: 065
  5. LANSOPRAZOLE [Concomitant]
     Route: 065
  6. SERETIDE [Concomitant]
     Route: 055
  7. TIBOLONE [Concomitant]
     Route: 065

REACTIONS (5)
  - ANAL CANDIDIASIS [None]
  - CANDIDIASIS [None]
  - DRUG INTERACTION [None]
  - SKIN CANDIDA [None]
  - VAGINAL CANDIDIASIS [None]
